FAERS Safety Report 7048533-6 (Version None)
Quarter: 2010Q4

REPORT INFORMATION
  Report Type: 
  Country: None (occurrence: None)
  Receive Date: 20101007
  Receipt Date: 20100914
  Transmission Date: 20110411
  Serious: Yes (Other)
  Sender: FDA-Public Use
  Company Number: 2009-00006

PATIENT
  Sex: Female

DRUGS (5)
  1. NTG ULTRA SHEER SUNBLOCK LOTION SPF70 [Suspect]
     Indication: PROPHYLAXIS AGAINST SOLAR RADIATION
     Dosage: TOPICAL
     Route: 061
     Dates: start: 20090804
  2. OXYCODONE [Concomitant]
  3. IBUPROFEN [Concomitant]
  4. AMITRIPTYLINE HCL [Concomitant]
  5. FOSAMAX [Concomitant]

REACTIONS (2)
  - EXPOSURE TO TOXIC AGENT [None]
  - EYE IRRITATION [None]
